FAERS Safety Report 4824920-9 (Version None)
Quarter: 2005Q4

REPORT INFORMATION
  Report Type: 
  Country: None (occurrence: None)
  Receive Date: 20051012
  Receipt Date: 20050614
  Transmission Date: 20060501
  Serious: No
  Sender: FDA-Public Use
  Company Number: 2005S1000128

PATIENT
  Age: 58 Year
  Weight: 158.9 kg

DRUGS (16)
  1. CUBICIN [Suspect]
     Indication: DIABETIC FOOT INFECTION
     Dosage: 400 MG; Q24H; IV
     Route: 042
     Dates: start: 20050218, end: 20050227
  2. GLUCOPHAGE [Concomitant]
  3. LANTUS [Concomitant]
  4. HUMALOG [Concomitant]
  5. ACCUPRIL [Concomitant]
  6. LASIX [Concomitant]
  7. ASPIRIN [Concomitant]
  8. ZOCOR [Concomitant]
  9. LEVOTHYROXINE SODIUM [Concomitant]
  10. INOSITOL [Concomitant]
  11. ZOSYN [Concomitant]
  12. DIFLUCAN [Concomitant]
  13. FLAGYL [Concomitant]
  14. ZYVOX [Concomitant]
  15. TOBRAMYCIN [Concomitant]
  16. CIPROFLOXACIN [Concomitant]

REACTIONS (5)
  - BLOOD CREATINE PHOSPHOKINASE INCREASED [None]
  - HYPOTENSION [None]
  - MYALGIA [None]
  - RENAL FAILURE ACUTE [None]
  - TREMOR [None]
